FAERS Safety Report 8822135 (Version 2)
Quarter: 2012Q4

REPORT INFORMATION
  Report Type: 
  Country: US (occurrence: US)
  Receive Date: 20121003
  Receipt Date: 20121012
  Transmission Date: 20130627
  Serious: Yes (Hospitalization)
  Sender: FDA-Public Use
  Company Number: US-SANOFI-AVENTIS-2012SA071259

PATIENT
  Age: 47 Year
  Sex: Female

DRUGS (3)
  1. LANTUS SOLOSTAR [Suspect]
     Indication: TYPE I DIABETES MELLITUS
     Route: 058
  2. LANTUS SOLOSTAR [Suspect]
     Indication: TYPE I DIABETES MELLITUS
  3. SOLOSTAR [Suspect]
     Indication: TYPE I DIABETES MELLITUS

REACTIONS (3)
  - Diabetic complication [Unknown]
  - Malaise [Unknown]
  - Medication error [Unknown]
